FAERS Safety Report 15281211 (Version 1)
Quarter: 2018Q3

REPORT INFORMATION
  Report Type: Spontaneous
  Country: US (occurrence: US)
  Receive Date: 20180815
  Receipt Date: 20180815
  Transmission Date: 20181010
  Serious: No
  Sender: FDA-Public Use
  Company Number: US-MYLANLABS-2018M1052955

PATIENT
  Age: 5 Year
  Sex: Male

DRUGS (2)
  1. BUDESONIDE CAPSULES [Suspect]
     Active Substance: BUDESONIDE
     Indication: CROHN^S DISEASE
     Dosage: UNK
     Route: 048
  2. BUDESONIDE CAPSULES [Suspect]
     Active Substance: BUDESONIDE
     Indication: PROTEIN-LOSING GASTROENTEROPATHY

REACTIONS (5)
  - Wrong technique in product usage process [Unknown]
  - Product physical issue [Unknown]
  - Product use in unapproved indication [Unknown]
  - Product use complaint [Unknown]
  - No adverse event [Unknown]
